FAERS Safety Report 4777504-5 (Version None)
Quarter: 2005Q3

REPORT INFORMATION
  Report Type: 
  Country: None (occurrence: None)
  Receive Date: 20050921
  Receipt Date: 20050913
  Transmission Date: 20060218
  Serious: Yes (Hospitalization)
  Sender: FDA-Public Use
  Company Number: EM2005-0340

PATIENT
  Age: 37 Year
  Sex: Male
  Weight: 63 kg

DRUGS (8)
  1. PROLEUKIN [Suspect]
     Indication: HIV INFECTION
     Dosage: SEE IMAGE, SUBCUTAN.
     Route: 058
     Dates: start: 20050428, end: 20050502
  2. PROLEUKIN [Suspect]
     Indication: HIV INFECTION
     Dosage: SEE IMAGE, SUBCUTAN.
     Route: 058
     Dates: start: 20050526, end: 20050530
  3. PROLEUKIN [Suspect]
     Indication: HIV INFECTION
     Dosage: SEE IMAGE, SUBCUTAN.
     Route: 058
     Dates: start: 20050818
  4. ZOVIRAX [Concomitant]
  5. KALETRA (ERYTHROMYCIN ESTOLATE) [Concomitant]
  6. FUZEON [Concomitant]
  7. TRIZIVIR [Concomitant]
  8. VIREAD [Concomitant]

REACTIONS (1)
  - SPLENOMEGALY [None]
